FAERS Safety Report 5768110-4 (Version None)
Quarter: 2008Q2

REPORT INFORMATION
  Report Type: 
  Country: None (occurrence: None)
  Receive Date: 20080612
  Receipt Date: 20080610
  Transmission Date: 20081010
  Serious: Yes (Hospitalization)
  Sender: FDA-Public Use
  Company Number: NL-SANOFI-SYNTHELABO-F01200801005

PATIENT
  Sex: Female

DRUGS (2)
  1. CAPECITABINE [Suspect]
     Dosage: DAILY, D1-15, Q3W
     Route: 048
     Dates: start: 20080415, end: 20080429
  2. OXALIPLATIN [Suspect]
     Indication: COLORECTAL CANCER
     Route: 041
     Dates: start: 20080415, end: 20080415

REACTIONS (1)
  - CHOLECYSTITIS [None]
